FAERS Safety Report 8009112-7 (Version None)
Quarter: 2011Q4

REPORT INFORMATION
  Report Type: 
  Country: None (occurrence: None)
  Receive Date: 20111221
  Receipt Date: 20111213
  Transmission Date: 20120403
  Serious: Yes (Other)
  Sender: FDA-Public Use
  Company Number: 2011MA017590

PATIENT

DRUGS (2)
  1. GEMCITABINE HYDROCHLORIDE [Suspect]
     Indication: WEGENER'S GRANULOMATOSIS
  2. MYCOPHENOLATE MOFETIL [Suspect]
     Indication: WEGENER'S GRANULOMATOSIS

REACTIONS (2)
  - THROMBOTIC MICROANGIOPATHY [None]
  - TRANSITIONAL CELL CARCINOMA [None]
